FAERS Safety Report 15323793 (Version 1)
Quarter: 2018Q3

REPORT INFORMATION
  Report Type: Spontaneous
  Country: AR (occurrence: AR)
  Receive Date: 20180828
  Receipt Date: 20180828
  Transmission Date: 20181010
  Serious: Yes (Hospitalization, Other)
  Sender: FDA-Public Use
  Company Number: AR-AMGEN-ARGSP2018117786

PATIENT
  Age: 56 Year
  Sex: Female

DRUGS (2)
  1. ENBREL [Suspect]
     Active Substance: ETANERCEPT
     Indication: PSORIATIC ARTHROPATHY
     Dosage: 50 MG, WEEKLY
     Route: 058
  2. METHOTREXATE SODIUM. [Suspect]
     Active Substance: METHOTREXATE SODIUM
     Indication: PSORIATIC ARTHROPATHY
     Dosage: 15 MG, WEEKLY
     Route: 065

REACTIONS (6)
  - Antineutrophil cytoplasmic antibody positive [Recovering/Resolving]
  - Respiratory tract infection [Recovering/Resolving]
  - Renal failure [Recovering/Resolving]
  - Glomerulonephritis acute [Recovering/Resolving]
  - Hypertensive emergency [Recovering/Resolving]
  - Skin disorder [Unknown]
